FAERS Safety Report 13869958 (Version 4)
Quarter: 2020Q2

REPORT INFORMATION
  Report Type: Report from Study
  Country: ZA (occurrence: ZA)
  Receive Date: 20170815
  Receipt Date: 20200626
  Transmission Date: 20200713
  Serious: Yes (Other)
  Sender: FDA-Public Use
  Company Number: PHHY2017ZA109868

PATIENT
  Age: 30 Year
  Sex: Female

DRUGS (1)
  1. TUVIGIN [Suspect]
     Active Substance: FINGOLIMOD HYDROCHLORIDE
     Indication: RELAPSING-REMITTING MULTIPLE SCLEROSIS
     Dosage: 0.5 MG, QD
     Route: 048
     Dates: start: 20170724

REACTIONS (20)
  - Memory impairment [Unknown]
  - Glomerular filtration rate decreased [Unknown]
  - Intervertebral disc space narrowing [Unknown]
  - Multiple sclerosis relapse [Unknown]
  - Confusional state [Unknown]
  - Hyperhidrosis [Unknown]
  - Anion gap increased [Unknown]
  - Bradycardia [Unknown]
  - Haemangioma [Unknown]
  - Yellow skin [Unknown]
  - Chills [Unknown]
  - Muscle spasms [Unknown]
  - Neutrophil count increased [Unknown]
  - Intervertebral disc protrusion [Unknown]
  - Pruritus [Unknown]
  - Haematochezia [Unknown]
  - Lymphocyte count decreased [Unknown]
  - Monocyte count increased [Unknown]
  - Pituitary enlargement [Unknown]
  - Blood pressure fluctuation [Unknown]

NARRATIVE: CASE EVENT DATE: 20170724
